FAERS Safety Report 21296325 (Version 1)
Quarter: 2022Q3

REPORT INFORMATION
  Report Type: Spontaneous
  Country: US (occurrence: US)
  Receive Date: 20220906
  Receipt Date: 20220906
  Transmission Date: 20221027
  Serious: No
  Sender: FDA-Public Use
  Company Number: US-JNJFOC-20220860419

PATIENT
  Sex: Female
  Weight: 47.670 kg

DRUGS (1)
  1. RISPERDAL [Suspect]
     Active Substance: RISPERIDONE
     Indication: Bipolar disorder
     Route: 065
     Dates: start: 2015

REACTIONS (3)
  - Amenorrhoea [Unknown]
  - Menstruation irregular [Recovered/Resolved]
  - Exposure during pregnancy [Not Recovered/Not Resolved]
